FAERS Safety Report 8457656-6 (Version None)
Quarter: 2012Q2

REPORT INFORMATION
  Report Type: 
  Country: None (occurrence: None)
  Receive Date: 20120622
  Receipt Date: 20120615
  Transmission Date: 20120825
  Serious: No
  Sender: FDA-Public Use
  Company Number: US-PFIZER INC-2012146284

PATIENT
  Sex: Female

DRUGS (2)
  1. GENOTROPIN [Suspect]
     Dosage: 1 MG, 1XDAY, 7 DAYS PER WEEK
     Route: 058
  2. VITAMIN D [Concomitant]
     Dosage: 1000 UNIT (NO FURTHER SPECIFIED)

REACTIONS (2)
  - ABDOMINAL PAIN [None]
  - BONE PAIN [None]
